FAERS Safety Report 23655452 (Version 2)
Quarter: 2024Q1

REPORT INFORMATION
  Report Type: Spontaneous
  Country: US (occurrence: US)
  Receive Date: 20240320
  Receipt Date: 20240326
  Transmission Date: 20240410
  Serious: No
  Sender: FDA-Public Use
  Company Number: US-SA-SAC20240318000061

PATIENT
  Sex: Female

DRUGS (1)
  1. DUPIXENT [Suspect]
     Active Substance: DUPILUMAB
     Indication: Neurodermatitis
     Dosage: 300 MG, QOW
     Route: 058
     Dates: start: 202304

REACTIONS (6)
  - Dry skin [Unknown]
  - Eyelid skin dryness [Unknown]
  - Skin exfoliation [Unknown]
  - Pruritus [Unknown]
  - Erythema [Unknown]
  - Rash [Unknown]
